FAERS Safety Report 6375212-0 (Version None)
Quarter: 2009Q3

REPORT INFORMATION
  Report Type: 
  Country: None (occurrence: None)
  Receive Date: 20090924
  Receipt Date: 20090917
  Transmission Date: 20100115
  Serious: Yes (Death)
  Sender: FDA-Public Use
  Company Number: NZ-PFIZER INC-2009251554

PATIENT

DRUGS (4)
  1. METHOTREXATE SODIUM [Suspect]
  2. SULFASALAZINE [Suspect]
  3. PREDNISONE [Suspect]
  4. ADALIMUMAB [Suspect]

REACTIONS (6)
  - CARDIAC FAILURE [None]
  - CELLULITIS [None]
  - LUNG INFILTRATION [None]
  - MYOCARDIAL INFARCTION [None]
  - PNEUMONIA [None]
  - RESPIRATORY FAILURE [None]
